FAERS Safety Report 9158145 (Version 1)
Quarter: 2013Q1

REPORT INFORMATION
  Report Type: Spontaneous
  Country: PL (occurrence: PL)
  Receive Date: 20130312
  Receipt Date: 20130312
  Transmission Date: 20140127
  Serious: Yes (Other)
  Sender: FDA-Public Use
  Company Number: PL-UCBSA-080294

PATIENT
  Age: 12 Year
  Sex: Male

DRUGS (5)
  1. KEPPRA [Suspect]
     Dates: start: 2009
  2. VALPROIC ACID [Concomitant]
     Indication: EPILEPSY
  3. CARBAMAZEPINE [Concomitant]
     Indication: EPILEPSY
  4. OXCARBAZEPINE [Concomitant]
     Indication: EPILEPSY
  5. CLOBAZAM [Concomitant]
     Indication: EPILEPSY

REACTIONS (1)
  - Hemiparesis [Unknown]
